FAERS Safety Report 8429088-8 (Version None)
Quarter: 2012Q2

REPORT INFORMATION
  Report Type: 
  Country: None (occurrence: None)
  Receive Date: 20120612
  Receipt Date: 20120529
  Transmission Date: 20120825
  Serious: Yes (Hospitalization)
  Sender: FDA-Public Use
  Company Number: CH-CELGENEUS-151-21880-12053213

PATIENT
  Sex: Male

DRUGS (1)
  1. REVLIMID [Suspect]
     Route: 048

REACTIONS (4)
  - GOUT [None]
  - NO THERAPEUTIC RESPONSE [None]
  - FALL [None]
  - SPINAL FRACTURE [None]
